FAERS Safety Report 9939182 (Version 1)
Quarter: 2014Q1

REPORT INFORMATION
  Report Type: Report from Study
  Country: US (occurrence: US)
  Receive Date: 20140303
  Receipt Date: 20140303
  Transmission Date: 20141002
  Serious: No
  Sender: FDA-Public Use
  Company Number: US-ABBVIE-13P-163-1037308-00

PATIENT
  Age: 78 Year
  Sex: Female

DRUGS (15)
  1. HUMIRA [Suspect]
     Indication: RHEUMATOID ARTHRITIS
     Route: 058
     Dates: start: 2011
  2. HUMIRA [Suspect]
     Indication: CROHN^S DISEASE
  3. HUMIRA [Suspect]
     Indication: PSORIASIS
  4. EVISTA [Concomitant]
     Indication: HORMONE REPLACEMENT THERAPY
  5. IMURAN [Concomitant]
     Indication: CROHN^S DISEASE
  6. PROZAC [Concomitant]
     Indication: NERVOUSNESS
  7. LIPITOR [Concomitant]
     Indication: BLOOD CHOLESTEROL
  8. NEXIUM [Concomitant]
     Indication: GASTROOESOPHAGEAL REFLUX DISEASE
  9. SINGULAIR [Concomitant]
     Indication: ASTHMA
  10. VALIUM [Concomitant]
     Indication: NERVOUSNESS
  11. DOXEPIN [Concomitant]
     Indication: FIBROMYALGIA
  12. AMBIEN [Concomitant]
     Indication: INSOMNIA
  13. FLORASTOR [Concomitant]
     Indication: PRODUCT USED FOR UNKNOWN INDICATION
  14. VICODIN [Concomitant]
     Indication: PAIN
  15. CYMBALTA [Concomitant]
     Indication: FIBROMYALGIA
     Dates: start: 201202

REACTIONS (2)
  - Malaise [Not Recovered/Not Resolved]
  - Dyspnoea [Not Recovered/Not Resolved]
